FAERS Safety Report 17899763 (Version 1)
Quarter: 2020Q2

REPORT INFORMATION
  Report Type: Spontaneous
  Country: DK (occurrence: DK)
  Receive Date: 20200616
  Receipt Date: 20200616
  Transmission Date: 20200714
  Serious: Yes (Hospitalization)
  Sender: FDA-Public Use
  Company Number: NVSC2020DK164906

PATIENT
  Age: 96 Year
  Sex: Female

DRUGS (9)
  1. FUROSEMIDE ACCORD [Concomitant]
     Active Substance: FUROSEMIDE
     Indication: DIURETIC THERAPY
     Dosage: 80 MG, QD
     Route: 048
     Dates: start: 20200115
  2. METOPROLOL SUCCINATE. [Concomitant]
     Active Substance: METOPROLOL SUCCINATE
     Indication: HEART RATE IRREGULAR
     Dosage: 50 MG, QD
     Route: 048
     Dates: start: 20191227
  3. THIAMAZOL [Concomitant]
     Active Substance: METHIMAZOLE
     Indication: HYPERMETABOLISM
     Dosage: 10 MG, QD
     Route: 048
     Dates: start: 20191227
  4. PANODIL [Concomitant]
     Active Substance: ACETAMINOPHEN
     Indication: PAIN
     Dosage: 1000 MG
     Route: 048
     Dates: start: 20171117
  5. ELIQUIS [Concomitant]
     Active Substance: APIXABAN
     Indication: THROMBOSIS PROPHYLAXIS
     Dosage: 5 MG, QD
     Route: 048
     Dates: start: 20191227
  6. PANTOPRAZOLE [Concomitant]
     Active Substance: PANTOPRAZOLE
     Indication: GASTRIC ULCER
     Dosage: 40 MG, QD
     Route: 048
     Dates: start: 20200109
  7. AZARGA [Concomitant]
     Active Substance: BRINZOLAMIDE\TIMOLOL MALEATE
     Indication: GLAUCOMA
     Dosage: 2 GTT, QD
     Route: 050
     Dates: start: 20161215
  8. OXAPAX [Suspect]
     Active Substance: OXAZEPAM
     Indication: SEDATIVE THERAPY
     Dosage: 7.5 MG
     Route: 048
     Dates: start: 20190521
  9. KALIUMKLORID ORIFARM [Concomitant]
     Indication: MINERAL SUPPLEMENTATION
     Dosage: UNK
     Route: 048
     Dates: start: 20191224

REACTIONS (3)
  - Fall [Recovered/Resolved]
  - Discomfort [Recovered/Resolved]
  - Hangover [Recovered/Resolved]

NARRATIVE: CASE EVENT DATE: 20200331
